FAERS Safety Report 9018817 (Version 2)
Quarter: 2013Q1

REPORT INFORMATION
  Report Type: Spontaneous
  Country: BR (occurrence: BR)
  Receive Date: 20130118
  Receipt Date: 20130227
  Transmission Date: 20140127
  Serious: Yes (Hospitalization, Other)
  Sender: FDA-Public Use
  Company Number: BR-ASTRAZENECA-2013SE03020

PATIENT
  Age: 44 Year
  Sex: Male

DRUGS (2)
  1. ATACAND [Suspect]
     Indication: HYPERTENSION
     Route: 048
     Dates: start: 201211, end: 20130111
  2. ATACAND HCT [Suspect]
     Indication: HYPERTENSION
     Dosage: 16/12.5 MG, DAILY
     Route: 048
     Dates: end: 201211

REACTIONS (4)
  - Coronary artery occlusion [Recovered/Resolved]
  - Blood pressure increased [Recovered/Resolved]
  - Orthostatic hypotension [Recovered/Resolved]
  - Drug ineffective [Unknown]
